FAERS Safety Report 10003652 (Version 2)
Quarter: 2014Q1

REPORT INFORMATION
  Report Type: Spontaneous
  Country: US (occurrence: US)
  Receive Date: 20140312
  Receipt Date: 20140312
  Transmission Date: 20141002
  Serious: No
  Sender: FDA-Public Use
  Company Number: US-GILEAD-2012-0060106

PATIENT
  Sex: Female
  Weight: 67.57 kg

DRUGS (15)
  1. LETAIRIS [Suspect]
     Indication: PULMONARY HYPERTENSION
     Dosage: 5 MG, UNK
     Route: 048
     Dates: start: 20120605
  2. LETAIRIS [Suspect]
     Indication: MITRAL VALVE STENOSIS
  3. ALLEGRA [Concomitant]
  4. COLCHICINE [Concomitant]
  5. COMBIVENT [Concomitant]
  6. FISH OIL [Concomitant]
  7. FLUTICASONE [Concomitant]
  8. FUROSEMIDE [Concomitant]
  9. LEVOTHROID [Concomitant]
  10. MULTIVITAMIN                       /00097801/ [Concomitant]
  11. PRADAXA [Concomitant]
  12. QVAR [Concomitant]
  13. SOLARAZE [Concomitant]
  14. SOTALOL [Concomitant]
  15. ZOCOR [Concomitant]

REACTIONS (3)
  - Fluid retention [Unknown]
  - Weight increased [Unknown]
  - Oedema peripheral [Unknown]
